FAERS Safety Report 14510961 (Version 2)
Quarter: 2018Q1

REPORT INFORMATION
  Report Type: Spontaneous
  Country: FR (occurrence: FR)
  Receive Date: 20180209
  Receipt Date: 20180322
  Transmission Date: 20180509
  Serious: Yes (Hospitalization)
  Sender: FDA-Public Use
  Company Number: FR-TEVA-2018-FR-854657

PATIENT
  Age: 34 Year
  Sex: Female
  Weight: 107 kg

DRUGS (3)
  1. ARIPIPRAZOLE. [Suspect]
     Active Substance: ARIPIPRAZOLE
     Indication: PSYCHOTIC DISORDER
     Dosage: 20 MILLIGRAM DAILY;
     Route: 048
     Dates: start: 20050101
  2. CYAMEMAZINE [Concomitant]
     Active Substance: CYAMEMAZINE
     Dosage: CYAMEMAZINE 40MG/ML 10 GOUTTES SI BESOINS
     Route: 048
  3. ATENOLOL. [Concomitant]
     Active Substance: ATENOLOL
     Dosage: 5 MILLIGRAM DAILY; .
     Route: 048
     Dates: start: 20140101

REACTIONS (3)
  - Diabetes insipidus [Not Recovered/Not Resolved]
  - Weight increased [Unknown]
  - Dry mouth [Not Recovered/Not Resolved]

NARRATIVE: CASE EVENT DATE: 2015
